FAERS Safety Report 7097541-8 (Version None)
Quarter: 2010Q4

REPORT INFORMATION
  Report Type: 
  Country: None (occurrence: None)
  Receive Date: 20101111
  Receipt Date: 20101111
  Transmission Date: 20110411
  Serious: Yes (Hospitalization)
  Sender: FDA-Public Use
  Company Number: ES-AMGEN-UK356658

PATIENT
  Sex: Female

DRUGS (5)
  1. PANITUMUMAB [Suspect]
     Indication: COLORECTAL CANCER
     Dosage: 480 MG, Q2WK
     Route: 042
     Dates: start: 20090519
  2. FLUOROURACIL [Suspect]
     Dosage: 556.8 MG, UNK
     Route: 042
     Dates: start: 20090519
  3. FLUOROURACIL [Suspect]
     Dosage: 3340.8 MG, UNK
     Route: 042
     Dates: start: 20090630
  4. OXALIPLATIN [Suspect]
     Dosage: 147.9 MG, UNK
     Route: 042
     Dates: start: 20090519
  5. FOLINIC ACID [Suspect]
     Dosage: 348 MG, UNK
     Route: 042
     Dates: start: 20090519

REACTIONS (1)
  - OESOPHAGITIS [None]
